FAERS Safety Report 11510910 (Version 4)
Quarter: 2018Q3

REPORT INFORMATION
  Report Type: Report from Study
  Country: FR (occurrence: FR)
  Receive Date: 20150915
  Receipt Date: 20180929
  Transmission Date: 20181010
  Serious: Yes (Hospitalization)
  Sender: FDA-Public Use
  Company Number: PHHO2015FR013404

PATIENT
  Age: 9 Year
  Sex: Female
  Weight: 29.7 kg

DRUGS (4)
  1. IBUPROFEN. [Concomitant]
     Active Substance: IBUPROFEN
     Indication: STILL^S DISEASE
     Dosage: 200 MG, QD
     Route: 048
     Dates: start: 20131118
  2. ACZ885 [Suspect]
     Active Substance: CANAKINUMAB
     Indication: STILL^S DISEASE
     Dosage: 4 MG/KG, QW4
     Route: 058
     Dates: start: 20141210, end: 20150723
  3. METHOTREXATE. [Concomitant]
     Active Substance: METHOTREXATE
     Indication: STILL^S DISEASE
     Dosage: 15 MG, 7QD
     Route: 048
     Dates: start: 20140601
  4. PREDNISONE. [Concomitant]
     Active Substance: PREDNISONE
     Indication: STILL^S DISEASE
     Dosage: 4 MG, QD
     Route: 048
     Dates: start: 20150113

REACTIONS (1)
  - Epstein-Barr virus infection [Recovered/Resolved]

NARRATIVE: CASE EVENT DATE: 20150817
